FAERS Safety Report 26076232 (Version 3)
Quarter: 2025Q4

REPORT INFORMATION
  Report Type: Spontaneous
  Country: US (occurrence: US)
  Receive Date: 20251121
  Receipt Date: 20251221
  Transmission Date: 20260117
  Serious: Yes (Hospitalization, Other)
  Sender: NEUROCRINE BIOSCIENCES
  Company Number: US-NEUROCRINE BIOSCIENCES INC.-2025NBI15254

PATIENT
  Sex: Male

DRUGS (1)
  1. INGREZZA [Suspect]
     Active Substance: VALBENAZINE DITOSYLATE
     Indication: Tardive dyskinesia
     Dosage: 40 MILLIGRAM,QD
     Route: 061

REACTIONS (9)
  - Psychiatric care [Recovering/Resolving]
  - Suicide attempt [Unknown]
  - Abnormal behaviour [Unknown]
  - Type 2 diabetes mellitus [Unknown]
  - Drug effect less than expected [Unknown]
  - Confusional state [Unknown]
  - Anger [Unknown]
  - Anxiety disorder [Unknown]
  - Insomnia [Unknown]
